FAERS Safety Report 8904360 (Version 2)
Quarter: 2013Q1

REPORT INFORMATION
  Report Type: Spontaneous
  Country: US (occurrence: US)
  Receive Date: 20121113
  Receipt Date: 20130222
  Transmission Date: 20140127
  Serious: Yes (Death, Hospitalization, Other)
  Sender: FDA-Public Use
  Company Number: US-VERTEX PHARMACEUTICAL INC.-2012-024410

PATIENT
  Age: 74 Year
  Sex: Male
  Weight: 66 kg

DRUGS (3)
  1. INCIVEK [Suspect]
     Indication: HEPATITIS C
     Dosage: 750 MG, TID
     Route: 048
     Dates: start: 20121010, end: 20121017
  2. RIBAVIRIN [Suspect]
     Indication: HEPATITIS C
     Dosage: 400 MG, BID
     Route: 048
     Dates: start: 20121010, end: 20121017
  3. PEGASYS [Suspect]
     Indication: HEPATITIS C
     Dosage: 180 ?G, QW
     Route: 058
     Dates: start: 20121010, end: 20121017

REACTIONS (8)
  - Hepatic failure [Fatal]
  - Renal failure acute [Unknown]
  - Abdominal distension [Unknown]
  - Malaise [Unknown]
  - Escherichia bacteraemia [Unknown]
  - Peritonitis bacterial [Unknown]
  - Cellulitis [Unknown]
  - Urinary tract infection [Unknown]
